FAERS Safety Report 24112376 (Version 1)
Quarter: 2024Q3

REPORT INFORMATION
  Report Type: Report from Study
  Country: US (occurrence: None)
  Receive Date: 20240719
  Receipt Date: 20240719
  Transmission Date: 20241016
  Serious: Yes (Hospitalization, Other)
  Sender: ASTRAZENECA
  Company Number: 2020SF73885

PATIENT
  Sex: Female
  Weight: 77.1 kg

DRUGS (11)
  1. TAGRISSO [Suspect]
     Active Substance: OSIMERTINIB
     Indication: Metastases to lung
     Route: 048
     Dates: start: 20191003
  2. ACETAMNOPHEN [Concomitant]
     Dosage: 500.0MG UNKNOWN
  3. AMLODIPINE [Concomitant]
     Active Substance: AMLODIPINE BESYLATE
     Dosage: 5.0MG UNKNOWN
  4. BENZONATATE [Concomitant]
     Active Substance: BENZONATATE
     Dosage: 100.0MG UNKNOWN
  5. GABAPENTIN [Concomitant]
     Active Substance: GABAPENTIN
     Dosage: 100.0MG UNKNOWN
  6. HYDROCHLOROTHIAZIDE [Concomitant]
     Active Substance: HYDROCHLOROTHIAZIDE
     Dosage: 25.0MG UNKNOWN
  7. IRBESARTAN [Concomitant]
     Active Substance: IRBESARTAN
     Dosage: 300.0MG UNKNOWN
  8. OXYCODONE [Concomitant]
     Active Substance: OXYCODONE
     Dosage: 5.0MG UNKNOWN
  9. POTASSIUM CHLORIDE [Concomitant]
     Active Substance: POTASSIUM CHLORIDE
  10. TRAMADOL HCL [Concomitant]
     Active Substance: TRAMADOL HYDROCHLORIDE
     Dosage: 50.0MG UNKNOWN
  11. ZOFRAN [Concomitant]
     Active Substance: ONDANSETRON HYDROCHLORIDE
     Dosage: 8.0MG UNKNOWN

REACTIONS (2)
  - Atrial fibrillation [Unknown]
  - Hypertension [Unknown]
